FAERS Safety Report 11654439 (Version 1)
Quarter: 2015Q4

REPORT INFORMATION
  Report Type: Spontaneous
  Country: US (occurrence: None)
  Receive Date: 20151022
  Receipt Date: 20151022
  Transmission Date: 20160304
  Serious: Yes (Other)
  Sender: FDA-Public Use
  Company Number: None

PATIENT
  Age: 40 Year
  Sex: Female
  Weight: 62.6 kg

DRUGS (4)
  1. CYMBALTA [Suspect]
     Active Substance: DULOXETINE HYDROCHLORIDE
     Indication: DEPRESSION
     Dosage: 1 X DAILY, TAKEN BY MOUTH
     Route: 048
     Dates: start: 20151001, end: 20151010
  2. LORAZAPON [Concomitant]
  3. CYMBALTA [Suspect]
     Active Substance: DULOXETINE HYDROCHLORIDE
     Indication: ANXIETY
     Dosage: 1 X DAILY, TAKEN BY MOUTH
     Route: 048
     Dates: start: 20151001, end: 20151010
  4. AMBIEN [Concomitant]
     Active Substance: ZOLPIDEM TARTRATE

REACTIONS (11)
  - Impaired work ability [None]
  - Hyperhidrosis [None]
  - Disorientation [None]
  - Dizziness [None]
  - Affective disorder [None]
  - Drug withdrawal syndrome [None]
  - Rash generalised [None]
  - Paraesthesia [None]
  - Nausea [None]
  - Chills [None]
  - Lethargy [None]

NARRATIVE: CASE EVENT DATE: 20151021
